FAERS Safety Report 9154002 (Version 2)
Quarter: 2013Q1

REPORT INFORMATION
  Report Type: Spontaneous
  Country: JP (occurrence: JP)
  Receive Date: 20130311
  Receipt Date: 20130322
  Transmission Date: 20140127
  Serious: Yes (Hospitalization)
  Sender: FDA-Public Use
  Company Number: JP-ASTELLAS-2013JP003539

PATIENT
  Sex: Male

DRUGS (17)
  1. BETANIS [Suspect]
     Dosage: 50 MG, UID/QD
     Route: 048
     Dates: start: 2013, end: 20130308
  2. DETRUSITOL [Concomitant]
     Dosage: 4 MG, UID/QD
     Route: 048
     Dates: end: 201303
  3. EBRANTIL                           /00631801/ [Concomitant]
     Dosage: 45 MG, BID
     Route: 048
  4. ZYRTEC [Concomitant]
     Dosage: 10 MG, UID/QD
     Route: 048
  5. SENNOSIDE                          /00571901/ [Concomitant]
     Dosage: 12 MG, UID/QD
     Route: 048
  6. PAXIL CR [Concomitant]
     Dosage: 12.5 MG, UID/QD
     Route: 048
  7. DOPS [Concomitant]
     Dosage: 100 MG, TID
     Route: 048
  8. NEODOPASTON [Concomitant]
     Dosage: 100 MG, TID
     Route: 048
  9. MAGLAX [Concomitant]
     Dosage: 250 MG, TID
     Route: 048
  10. AMARYL [Concomitant]
     Dosage: 1 MG, BID
     Route: 048
  11. BASEN [Concomitant]
     Dosage: 0.2 MG, TID
     Route: 048
  12. TAKEPRON [Concomitant]
     Dosage: 15 MG, UID/QD
     Route: 048
  13. LENDORMIN [Concomitant]
     Dosage: 0.25 MG, UID/QD
     Route: 048
  14. REMINYL [Concomitant]
     Dosage: 8 MG, BID
     Route: 048
  15. MEMARY [Concomitant]
     Dosage: 20 MG, UID/QD
     Route: 048
  16. MIRAPEX LA [Concomitant]
     Dosage: 0.375 MG, UID/QD
     Route: 048
     Dates: start: 20130307
  17. NIPRADILOL [Concomitant]
     Dosage: UNK
     Route: 047

REACTIONS (2)
  - Parkinson^s disease [Recovering/Resolving]
  - Dementia [Unknown]
